FAERS Safety Report 21271188 (Version 2)
Quarter: 2022Q3

REPORT INFORMATION
  Report Type: Other
  Country: US (occurrence: None)
  Receive Date: 20220830
  Receipt Date: 20220901
  Transmission Date: 20221027
  Serious: No
  Sender: FDA-Public Use
  Company Number: US-ROCHE-3170326

PATIENT
  Age: 42 Year
  Sex: Female
  Weight: 118.04 kg

DRUGS (1)
  1. OCREVUS [Suspect]
     Active Substance: OCRELIZUMAB
     Indication: Multiple sclerosis
     Dosage: DATE OF THERAPY: 16-AUG-2022, 17-JAN-2022, 19-JAN-2021, 28-JUL-2020, 28-JAN-2020, 30-JUL-2019, 20/JU
     Route: 042
     Dates: start: 2020

REACTIONS (1)
  - COVID-19 [Recovered/Resolved]

NARRATIVE: CASE EVENT DATE: 20220629
